FAERS Safety Report 24398284 (Version 1)
Quarter: 2024Q4

REPORT INFORMATION
  Report Type: Report from Study
  Country: US (occurrence: US)
  Receive Date: 20241004
  Receipt Date: 20241004
  Transmission Date: 20250115
  Serious: Yes (Other)
  Sender: PFIZER
  Company Number: US-PFIZER INC-PV202400127858

PATIENT
  Age: 46 Year
  Sex: Female

DRUGS (2)
  1. BRAFTOVI [Suspect]
     Active Substance: ENCORAFENIB
     Indication: Astrocytoma, low grade
     Dosage: 450 MG, DAILY
  2. MEKTOVI [Suspect]
     Active Substance: BINIMETINIB
     Indication: Astrocytoma, low grade
     Dosage: 45 MG, 2X/DAY

REACTIONS (2)
  - Retinopathy [Recovering/Resolving]
  - Anaemia [Recovering/Resolving]
